FAERS Safety Report 18728667 (Version 1)
Quarter: 2021Q1

REPORT INFORMATION
  Report Type: Spontaneous
  Country: US (occurrence: US)
  Receive Date: 20210112
  Receipt Date: 20210112
  Transmission Date: 20210419
  Serious: No
  Sender: FDA-Public Use
  Company Number: US-STRIDES ARCOLAB LIMITED-2020SP012188

PATIENT
  Age: 31 Year
  Sex: Female

DRUGS (3)
  1. TERCONAZOLE. [Suspect]
     Active Substance: TERCONAZOLE
     Indication: VAGINAL INFECTION
     Dosage: UNK
     Route: 067
  2. KETOCONAZOLE. [Suspect]
     Active Substance: KETOCONAZOLE
     Indication: VAGINAL INFECTION
     Dosage: UNK, DAILY UNTIL SYMPTOMS IMPROVED  (SHAMPOO)
     Route: 065
  3. FLUCONAZOLE. [Suspect]
     Active Substance: FLUCONAZOLE
     Indication: VULVOVAGINAL PRURITUS
     Dosage: UNK, 2 DOSES, 72H APART, AND THEN WEEKLY DOSES FOR THREE ADDITIONAL WEEKS
     Route: 065

REACTIONS (1)
  - Maternal exposure during pregnancy [Unknown]
